FAERS Safety Report 6104910-9 (Version None)
Quarter: 2009Q1

REPORT INFORMATION
  Report Type: 
  Country: None (occurrence: None)
  Receive Date: 20090304
  Receipt Date: 20090218
  Transmission Date: 20090719
  Serious: Yes (Congenital Anomaly, Other)
  Sender: FDA-Public Use
  Company Number: 2008AP000121

PATIENT
  Sex: Female

DRUGS (1)
  1. PAROXETINE HYDROCHLORIDE [Suspect]
     Dosage: TRPL
     Route: 064

REACTIONS (4)
  - CONGENITAL PULMONARY HYPERTENSION [None]
  - DEVELOPMENTAL DELAY [None]
  - INFANTILE ASTHMA [None]
  - MATERNAL DRUGS AFFECTING FOETUS [None]
